FAERS Safety Report 8985756 (Version 2)
Quarter: 2013Q1

REPORT INFORMATION
  Report Type: Spontaneous
  Country: US (occurrence: US)
  Receive Date: 20121226
  Receipt Date: 20130214
  Transmission Date: 20140127
  Serious: No
  Sender: FDA-Public Use
  Company Number: US-ELI_LILLY_AND_COMPANY-US201212005693

PATIENT
  Sex: Female

DRUGS (11)
  1. FORTEO [Suspect]
     Indication: OSTEOPOROSIS
     Dosage: 20 UG, QD
     Dates: start: 201206
  2. METHOCARBAMOL [Concomitant]
     Dosage: UNK
  3. VITAMIN D [Concomitant]
     Dosage: 50000 IU, WEEKLY (1/W)
  4. WARFARIN [Concomitant]
     Dosage: UNK
  5. THEOPHYLLINE [Concomitant]
     Dosage: UNK UNK, BID
  6. SPIRIVA [Concomitant]
     Dosage: UNK UNK, QD
  7. ADVAIR [Concomitant]
     Dosage: UNK UNK, BID
  8. PROAIR [Concomitant]
     Dosage: UNK UNK, QID
  9. OXYGEN [Concomitant]
     Dosage: UNK
  10. CLORAZEPATE [Concomitant]
     Dosage: UNK
  11. VITAMINS [Concomitant]
     Dosage: UNK

REACTIONS (3)
  - Onychomadesis [Unknown]
  - Injury associated with device [Unknown]
  - Back pain [Unknown]
